FAERS Safety Report 5790122-5 (Version None)
Quarter: 2008Q2

REPORT INFORMATION
  Report Type: 
  Country: None (occurrence: None)
  Receive Date: 20080626
  Receipt Date: 20080221
  Transmission Date: 20081010
  Serious: No
  Sender: FDA-Public Use
  Company Number: A0681315A

PATIENT

DRUGS (1)
  1. ALLI [Suspect]
     Route: 048

REACTIONS (4)
  - FATIGUE [None]
  - HUNGER [None]
  - INFLUENZA LIKE ILLNESS [None]
  - PAIN OF SKIN [None]
